FAERS Safety Report 23692933 (Version 1)
Quarter: 2024Q2

REPORT INFORMATION
  Report Type: Spontaneous
  Country: US (occurrence: US)
  Receive Date: 20240401
  Receipt Date: 20240401
  Transmission Date: 20240716
  Serious: No
  Sender: FDA-Public Use
  Company Number: US-SANOFI-01991106

PATIENT
  Age: 3 Month
  Sex: Male

DRUGS (8)
  1. DUPIXENT [Suspect]
     Active Substance: DUPILUMAB
     Indication: Eczema
     Dosage: 200 MG QOW
     Dates: start: 202401
  2. SYMBICORT [Concomitant]
     Active Substance: BUDESONIDE\FORMOTEROL FUMARATE DIHYDRATE
     Dosage: DAILY
     Route: 055
  3. CETIRIZINE [Concomitant]
     Active Substance: CETIRIZINE HYDROCHLORIDE
     Dosage: DAILY
     Route: 055
  4. MUPIROCIN [Concomitant]
     Active Substance: MUPIROCIN
  5. MOMETASONE [Concomitant]
     Active Substance: MOMETASONE
  6. TRIAMCINOLONE [Concomitant]
     Active Substance: TRIAMCINOLONE
  7. EPIPEN [Concomitant]
     Active Substance: EPINEPHRINE
  8. ALBUTEROL [Concomitant]
     Active Substance: ALBUTEROL
     Dosage: AS NEEDED

REACTIONS (3)
  - Accidental exposure to product [Unknown]
  - Exposure via skin contact [Unknown]
  - Product administered to patient of inappropriate age [Unknown]

NARRATIVE: CASE EVENT DATE: 20240101
